FAERS Safety Report 4919997-6 (Version None)
Quarter: 2006Q1

REPORT INFORMATION
  Report Type: 
  Country: None (occurrence: None)
  Receive Date: 20060217
  Receipt Date: 20060203
  Transmission Date: 20060701
  Serious: Yes (Death)
  Sender: FDA-Public Use
  Company Number: 13421

PATIENT
  Age: 85 Year
  Sex: Female

DRUGS (3)
  1. METHOTREXATE [Suspect]
     Indication: RHEUMATOID ARTHRITIS
     Dosage: 20 MG DAILY
  2. XIPAMIDE [Concomitant]
  3. NITRATES [Concomitant]

REACTIONS (5)
  - ACCIDENTAL OVERDOSE [None]
  - DRUG TOXICITY [None]
  - PANCYTOPENIA [None]
  - RESPIRATORY FAILURE [None]
  - SEPTIC SHOCK [None]
